FAERS Safety Report 21921280 (Version 1)
Quarter: 2023Q1

REPORT INFORMATION
  Report Type: Spontaneous
  Country: IN (occurrence: IN)
  Receive Date: 20230127
  Receipt Date: 20230127
  Transmission Date: 20230417
  Serious: Yes (Other)
  Sender: FDA-Public Use
  Company Number: IN-GLAXOSMITHKLINE-IN2023GSK009897

PATIENT

DRUGS (4)
  1. FLUTICASONE PROPIONATE [Suspect]
     Active Substance: FLUTICASONE PROPIONATE
     Indication: Asthma
     Dosage: UNK
     Route: 055
  2. FORMOTEROL [Suspect]
     Active Substance: FORMOTEROL
     Indication: Asthma
     Dosage: UNK
     Route: 055
  3. BUDESONIDE [Suspect]
     Active Substance: BUDESONIDE
     Indication: Asthma
     Dosage: 200 UG, BID
     Route: 055
  4. AZELASTINE [Suspect]
     Active Substance: AZELASTINE
     Indication: Asthma
     Dosage: UNK
     Route: 055

REACTIONS (17)
  - Otitis media chronic [Recovered/Resolved]
  - Nocardiosis [Recovered/Resolved]
  - Ear pain [Recovered/Resolved]
  - Otorrhoea [Recovered/Resolved]
  - Hypoacusis [Recovered/Resolved]
  - Otitis externa fungal [Recovered/Resolved]
  - Ear swelling [Recovered/Resolved]
  - Tympanic membrane perforation [Recovered/Resolved]
  - Nasal turbinate hypertrophy [Recovered/Resolved]
  - Nasal septum deviation [Recovered/Resolved]
  - Mastoiditis [Recovered/Resolved]
  - Conductive deafness [Recovered/Resolved]
  - Otitis externa [Recovered/Resolved]
  - Pyrexia [Recovered/Resolved]
  - Tinnitus [Recovered/Resolved]
  - Deafness [Recovered/Resolved]
  - Venous thrombosis [Recovered/Resolved]
